FAERS Safety Report 9764082 (Version 2)
Quarter: 2014Q1

REPORT INFORMATION
  Report Type: Spontaneous
  Country: US (occurrence: US)
  Receive Date: 20131216
  Receipt Date: 20140113
  Transmission Date: 20141002
  Serious: No
  Sender: FDA-Public Use
  Company Number: US-BIOGENIDEC-2013BI112412

PATIENT
  Age: 47 Year
  Sex: Female

DRUGS (2)
  1. TECFIDERA [Suspect]
     Indication: MULTIPLE SCLEROSIS
     Dates: start: 20131112
  2. TECFIDERA [Suspect]
     Indication: MULTIPLE SCLEROSIS
     Dates: start: 20131228

REACTIONS (10)
  - Pain [Unknown]
  - Fatigue [Recovered/Resolved]
  - Sensory disturbance [Unknown]
  - Somnolence [Unknown]
  - Urticaria [Unknown]
  - Hypersomnia [Unknown]
  - Mobility decreased [Unknown]
  - Excoriation [Unknown]
  - Flushing [Recovered/Resolved]
  - Vomiting [Not Recovered/Not Resolved]
